FAERS Safety Report 8982914 (Version 2)
Quarter: 2013Q1

REPORT INFORMATION
  Report Type: Report from Study
  Country: IT (occurrence: IT)
  Receive Date: 20121221
  Receipt Date: 20130115
  Transmission Date: 20140127
  Serious: Yes (Death, Hospitalization, Disabling, Other)
  Sender: FDA-Public Use
  Company Number: IT-TEVA-369481USA

PATIENT
  Age: 75 Year
  Sex: Female

DRUGS (4)
  1. TREANDA [Suspect]
     Indication: NON-HODGKIN^S LYMPHOMA
     Dosage: 135 MG
     Route: 042
     Dates: start: 20111110
  2. MABTHERA [Suspect]
     Indication: NON-HODGKIN^S LYMPHOMA
     Dosage: 560 MG, UNKNOWN/D
     Route: 042
  3. MITOXANTRONE [Suspect]
     Indication: NON-HODGKIN^S LYMPHOMA
     Dosage: 12 MG, UNKNOWN/D; REGIMEN #1
     Route: 042
  4. ^ANTIHYPERTENSIVE^ [Concomitant]

REACTIONS (5)
  - Visual acuity reduced [Not Recovered/Not Resolved]
  - Blindness [Not Recovered/Not Resolved]
  - Cerebrovascular accident [Unknown]
  - Retinitis viral [Not Recovered/Not Resolved]
  - Pneumonia [Fatal]
